FAERS Safety Report 6137465-3 (Version None)
Quarter: 2009Q1

REPORT INFORMATION
  Report Type: 
  Country: None (occurrence: None)
  Receive Date: 20090326
  Receipt Date: 20090318
  Transmission Date: 20090719
  Serious: Yes (Hospitalization)
  Sender: FDA-Public Use
  Company Number: IMP_04301_2009

PATIENT
  Age: 33 Year
  Sex: Female

DRUGS (1)
  1. MINOCYCLINE HCL [Suspect]
     Indication: ACNE
     Dosage: 100 MG QD, 100 MG ORAL
     Route: 048
     Dates: start: 20080601

REACTIONS (8)
  - APPARENT DEATH [None]
  - BODY TEMPERATURE INCREASED [None]
  - BONE MARROW TRANSPLANT [None]
  - IMMUNE SYSTEM DISORDER [None]
  - MALAISE [None]
  - PAIN [None]
  - RED BLOOD CELL ABNORMALITY [None]
  - RED BLOOD CELL COUNT DECREASED [None]
